FAERS Safety Report 7728451-8 (Version None)
Quarter: 2011Q3

REPORT INFORMATION
  Report Type: 
  Country: None (occurrence: None)
  Receive Date: 20110905
  Receipt Date: 20110825
  Transmission Date: 20111222
  Serious: Yes (Other)
  Sender: FDA-Public Use
  Company Number: PHHY2011CA76612

PATIENT
  Sex: Male

DRUGS (1)
  1. ZOLEDRONOC ACID [Suspect]
     Indication: OSTEOPOROSIS
     Dosage: UNK UKN, UNK
     Route: 042
     Dates: start: 20090917

REACTIONS (4)
  - OSTEOPOROSIS [None]
  - BONE DENSITY DECREASED [None]
  - COLITIS ULCERATIVE [None]
  - MULTIPLE FRACTURES [None]
